FAERS Safety Report 19201876 (Version 1)
Quarter: 2021Q2

REPORT INFORMATION
  Report Type: Report from Study
  Country: US (occurrence: US)
  Receive Date: 20210430
  Receipt Date: 20210430
  Transmission Date: 20210717
  Serious: Yes (Other)
  Sender: FDA-Public Use
  Company Number: US-SUN PHARMACEUTICAL INDUSTRIES LTD-2021R1-294309

PATIENT
  Sex: Female

DRUGS (2)
  1. FENTANYL. [Suspect]
     Active Substance: FENTANYL
     Indication: EPIDURAL ANALGESIA
     Dosage: 25 ?G
     Route: 037
  2. MORPHINE [Suspect]
     Active Substance: MORPHINE
     Indication: EPIDURAL ANALGESIA
     Dosage: 150 ?G
     Route: 037

REACTIONS (1)
  - Hypopnoea [Unknown]
